FAERS Safety Report 6899855-0 (Version None)
Quarter: 2010Q3

REPORT INFORMATION
  Report Type: 
  Country: None (occurrence: None)
  Receive Date: 20100803
  Receipt Date: 20100803
  Transmission Date: 20110219
  Serious: No
  Sender: FDA-Public Use
  Company Number: US-ELI_LILLY_AND_COMPANY-US201004002329

PATIENT
  Sex: Female
  Weight: 53.968 kg

DRUGS (4)
  1. FORTEO [Suspect]
     Indication: OSTEOPOROSIS
     Dosage: 20 UG, DAILY (1/D)
     Dates: start: 20091001
  2. LOESTRIN 1.5/30 [Concomitant]
  3. ACYCLOVIR [Concomitant]
     Dosage: 40 MG, 2/D
  4. MEDROL [Concomitant]

REACTIONS (1)
  - NO ADVERSE EVENT [None]
